FAERS Safety Report 9046564 (Version 1)
Quarter: 2013Q1

REPORT INFORMATION
  Report Type: Spontaneous
  Country: US (occurrence: US)
  Receive Date: 20130203
  Receipt Date: 20130203
  Transmission Date: 20140127
  Serious: No
  Sender: FDA-Public Use
  Company Number: US-ASTRAZENECA-2013SE03596

PATIENT
  Sex: Female

DRUGS (4)
  1. PLENDIL [Suspect]
     Indication: RAYNAUD^S PHENOMENON
     Route: 048
  2. PLENDIL [Suspect]
     Indication: RAYNAUD^S PHENOMENON
     Route: 048
  3. PLENDIL [Suspect]
     Indication: RAYNAUD^S PHENOMENON
     Route: 048
  4. GENERIC MEDICATION [Suspect]

REACTIONS (2)
  - Hypertension [Unknown]
  - Flushing [Unknown]
